FAERS Safety Report 8992831 (Version 1)
Quarter: 2013Q1

REPORT INFORMATION
  Report Type: Spontaneous
  Country: US (occurrence: US)
  Receive Date: 20130102
  Receipt Date: 20130102
  Transmission Date: 20140127
  Serious: Yes (Other)
  Sender: FDA-Public Use
  Company Number: US-BAYER-2012-136289

PATIENT
  Age: 32 Year
  Sex: Female

DRUGS (10)
  1. YASMIN [Suspect]
  2. OCELLA [Suspect]
  3. METOPROLOL [Concomitant]
     Indication: PALPITATIONS
     Dosage: 50 MG, UNK
     Route: 048
     Dates: start: 201101, end: 20120802
  4. METOPROLOL [Concomitant]
     Indication: HEART RATE INCREASED
  5. OMEPRAZOLE [Concomitant]
     Indication: DYSPEPSIA
     Dosage: 20 MG, UNK
     Route: 048
     Dates: start: 201101, end: 20120105
  6. FLEXERIL [Concomitant]
     Indication: MUSCULOSKELETAL PAIN
     Dosage: 10 MG, UNK
     Route: 048
     Dates: start: 20120105, end: 201208
  7. ANUCORT-HC [Concomitant]
     Indication: RECTAL HAEMORRHAGE
     Dosage: 25 MG, UNK
     Route: 051
     Dates: start: 20120727
  8. XANAX [Concomitant]
     Indication: ANXIETY
  9. BENEFIBER [Concomitant]
  10. COLACE [Concomitant]

REACTIONS (1)
  - Deep vein thrombosis [None]
